FAERS Safety Report 7562258-X (Version None)
Quarter: 2011Q2

REPORT INFORMATION
  Report Type: 
  Country: None (occurrence: None)
  Receive Date: 20110614
  Receipt Date: 20110606
  Transmission Date: 20111010
  Serious: Yes (Life-Threatening, Hospitalization)
  Sender: FDA-Public Use
  Company Number: 2011SP025896

PATIENT
  Age: 67 Year
  Sex: Male

DRUGS (12)
  1. METFORMIN HYDROCHLORIDE [Suspect]
     Indication: TYPE 2 DIABETES MELLITUS
     Dosage: 850 MG;TID;PO
     Route: 048
     Dates: end: 20110417
  2. COKENZEN (BLOPRESS PLUS) [Suspect]
     Indication: HYPERTENSION
     Dosage: 16 MG;QD;PO
     Route: 048
     Dates: end: 20110417
  3. ACARBOSE [Suspect]
     Indication: TYPE 2 DIABETES MELLITUS
     Dosage: 50 MG;TID;PO
     Route: 048
     Dates: end: 20110417
  4. ATENOLOL [Suspect]
     Indication: HYPERTENSION
     Dosage: 100 MG;QD;PO  PO
     Route: 048
     Dates: start: 20110424
  5. ATENOLOL [Suspect]
     Indication: HYPERTENSION
     Dosage: 100 MG;QD;PO  PO
     Route: 048
     Dates: end: 20110417
  6. XANAX [Suspect]
     Indication: DEPRESSION
     Dosage: 0.25 MG;TID;PO
     Route: 048
     Dates: end: 20110417
  7. MIRTAZAPINE [Suspect]
     Indication: DEPRESSION
     Dosage: 15 MG;QD
     Dates: end: 20110417
  8. MEDIATENSYL (URAPIDIL) [Suspect]
     Indication: HYPERTENSION
     Dosage: 60 MG;TID;PO
     Route: 048
     Dates: end: 20110417
  9. VERAPAMIL HYDROCHLORIDE [Suspect]
     Indication: HYPERTENSION
     Dosage: 240 MG;QD;PO
     Route: 048
     Dates: end: 20110417
  10. CIPROFIBRATE (CIPROFIBRATE) [Suspect]
     Indication: DYSLIPIDAEMIA
     Dosage: 100 MG;QD;PO
     Route: 048
     Dates: end: 20110417
  11. ESCITALOPRAM [Suspect]
     Indication: DEPRESSION
     Dosage: 10 MG;QD;PO
     Dates: end: 20110417
  12. ESCITALOPRAM [Suspect]
     Indication: DEPRESSION
     Dosage: 10 MG;QD;PO
     Dates: start: 20110424

REACTIONS (15)
  - SEPTIC SHOCK [None]
  - DEVICE RELATED INFECTION [None]
  - LACTIC ACIDOSIS [None]
  - DIARRHOEA [None]
  - PALLOR [None]
  - BRADYCARDIA [None]
  - VOMITING [None]
  - GENERAL PHYSICAL HEALTH DETERIORATION [None]
  - DISORIENTATION [None]
  - RENAL FAILURE ACUTE [None]
  - STAPHYLOCOCCAL BACTERAEMIA [None]
  - HYPOTENSION [None]
  - PYREXIA [None]
  - HYPERKALAEMIA [None]
  - DYSPNOEA [None]
